FAERS Safety Report 15945404 (Version 1)
Quarter: 2019Q1

REPORT INFORMATION
  Report Type: Spontaneous
  Country: US (occurrence: US)
  Receive Date: 20190119
  Receipt Date: 20190119
  Transmission Date: 20190417
  Serious: Yes (Hospitalization)
  Sender: FDA-Public Use
  Company Number: None

PATIENT
  Age: 70 Year
  Sex: Female
  Weight: 66.68 kg

DRUGS (1)
  1. BEVACIZUMAB (RHUMAB VEGF) [Suspect]
     Active Substance: BEVACIZUMAB
     Dates: end: 20181127

REACTIONS (5)
  - Dizziness [None]
  - Diverticulum [None]
  - Dyspnoea [None]
  - Haemorrhoids [None]
  - Gastrointestinal melanosis [None]

NARRATIVE: CASE EVENT DATE: 20181211
